FAERS Safety Report 15782852 (Version 3)
Quarter: 2019Q1

REPORT INFORMATION
  Report Type: Spontaneous
  Country: DE (occurrence: DE)
  Receive Date: 20190102
  Receipt Date: 20190306
  Transmission Date: 20190417
  Serious: Yes (Death, Other)
  Sender: FDA-Public Use
  Company Number: DE-MYLANLABS-2018M1095360

PATIENT
  Age: 57 Year
  Sex: Male

DRUGS (3)
  1. HYDROXYCARBAMIDE [Suspect]
     Active Substance: HYDROXYUREA
     Indication: CHRONIC MYELOID LEUKAEMIA
     Dosage: UNK
     Route: 065
  2. IMATINIB. [Suspect]
     Active Substance: IMATINIB MESYLATE
     Indication: CHRONIC MYELOID LEUKAEMIA
     Dosage: UNK
     Route: 065
     Dates: start: 201701
  3. IMATINIB. [Suspect]
     Active Substance: IMATINIB MESYLATE
     Indication: SYSTEMIC SCLERODERMA

REACTIONS (16)
  - Multiple organ dysfunction syndrome [Fatal]
  - Normocytic anaemia [Unknown]
  - Pleural effusion [Fatal]
  - Chronic myeloid leukaemia [Not Recovered/Not Resolved]
  - Clonal evolution [Not Recovered/Not Resolved]
  - Philadelphia chromosome positive [Not Recovered/Not Resolved]
  - White blood cell count decreased [Unknown]
  - Pyrexia [Unknown]
  - Drug ineffective [Unknown]
  - C-reactive protein increased [Unknown]
  - Pelvic pain [Unknown]
  - Thrombocytopenia [Unknown]
  - Blast crisis in myelogenous leukaemia [Not Recovered/Not Resolved]
  - Blood lactate dehydrogenase increased [Unknown]
  - Hepatic failure [Fatal]
  - Malignant neoplasm progression [Not Recovered/Not Resolved]

NARRATIVE: CASE EVENT DATE: 2017
